FAERS Safety Report 4541282-5 (Version None)
Quarter: 2004Q4

REPORT INFORMATION
  Report Type: 
  Country: None (occurrence: None)
  Receive Date: 20041228
  Receipt Date: 20041220
  Transmission Date: 20050328
  Serious: Yes (Death)
  Sender: FDA-Public Use
  Company Number: 163-20785-04120115

PATIENT
  Age: 52 Year
  Sex: Male

DRUGS (1)
  1. THALOMID [Suspect]
     Indication: SARCOMA
     Dosage: 200 MG DAILY ORAL
     Route: 048
     Dates: start: 20040708, end: 20040928

REACTIONS (1)
  - COMPLETED SUICIDE [None]
